FAERS Safety Report 7124237-6 (Version None)
Quarter: 2010Q4

REPORT INFORMATION
  Report Type: 
  Country: None (occurrence: None)
  Receive Date: 20101126
  Receipt Date: 20101122
  Transmission Date: 20110411
  Serious: Yes (Other)
  Sender: FDA-Public Use
  Company Number: JP-PFIZER INC-2010153941

PATIENT
  Age: 43 Year

DRUGS (2)
  1. ZITHROMAX [Suspect]
     Dosage: 250 MG, 2X/DAY
     Route: 048
     Dates: start: 20101119, end: 20101119
  2. SYMBICORT [Concomitant]

REACTIONS (2)
  - BLOOD PRESSURE INCREASED [None]
  - PALPITATIONS [None]
